FAERS Safety Report 21989741 (Version 2)
Quarter: 2023Q1

REPORT INFORMATION
  Report Type: Spontaneous
  Country: BE (occurrence: BE)
  Receive Date: 20230214
  Receipt Date: 20230216
  Transmission Date: 20230418
  Serious: No
  Sender: FDA-Public Use
  Company Number: BE-KRKA-BE2022K09870LIT

PATIENT
  Age: 70 Year
  Sex: Female

DRUGS (9)
  1. SUNITINIB MALATE [Suspect]
     Active Substance: SUNITINIB MALATE
     Indication: Pancreatic neuroendocrine tumour
     Dosage: UNK
     Dates: start: 2020
  2. SUNITINIB MALATE [Suspect]
     Active Substance: SUNITINIB MALATE
     Indication: Metastases to liver
  3. TEMOZOLOMIDE [Suspect]
     Active Substance: TEMOZOLOMIDE
     Indication: Metastases to liver
     Dosage: UNK
     Dates: start: 2020
  4. TEMOZOLOMIDE [Suspect]
     Active Substance: TEMOZOLOMIDE
     Indication: Pancreatic neuroendocrine tumour
  5. CAPECITABINE [Suspect]
     Active Substance: CAPECITABINE
     Indication: Pancreatic neuroendocrine tumour
     Dosage: UNK
     Dates: start: 2020
  6. CAPECITABINE [Suspect]
     Active Substance: CAPECITABINE
     Indication: Metastases to liver
  7. LEUCOVORIN CALCIUM [Suspect]
     Active Substance: LEUCOVORIN CALCIUM
     Indication: Pancreatic neuroendocrine tumour metastatic
     Dosage: UNK, FOLFOX REGIMEN
     Route: 065
     Dates: start: 2020
  8. FLUOROURACIL [Suspect]
     Active Substance: FLUOROURACIL
     Indication: Pancreatic neuroendocrine tumour metastatic
     Dosage: FOLFOX REGIMEN
     Route: 065
     Dates: start: 2020
  9. OXALIPLATIN [Suspect]
     Active Substance: OXALIPLATIN
     Indication: Pancreatic neuroendocrine tumour metastatic
     Dosage: UNK

REACTIONS (1)
  - No adverse event [Unknown]
